FAERS Safety Report 12612655 (Version 2)
Quarter: 2016Q3

REPORT INFORMATION
  Report Type: Spontaneous
  Country: US (occurrence: US)
  Receive Date: 20160801
  Receipt Date: 20160819
  Transmission Date: 20161109
  Serious: No
  Sender: FDA-Public Use
  Company Number: GXBR2016US002074

PATIENT
  Age: 12 Year
  Sex: Male

DRUGS (1)
  1. CICLOPIROX. [Suspect]
     Active Substance: CICLOPIROX
     Indication: DERMATITIS
     Dosage: UNK DF, QD
     Route: 061

REACTIONS (1)
  - Dry skin [Not Recovered/Not Resolved]
